FAERS Safety Report 6178243-9 (Version None)
Quarter: 2009Q2

REPORT INFORMATION
  Report Type: 
  Country: None (occurrence: None)
  Receive Date: 20090504
  Receipt Date: 20090424
  Transmission Date: 20091009
  Serious: Yes (Death, Hospitalization)
  Sender: FDA-Public Use
  Company Number: A0771920A

PATIENT
  Age: 64 Year
  Sex: Male
  Weight: 50 kg

DRUGS (3)
  1. ZOFRAN [Suspect]
     Dosage: 2MGML UNKNOWN
     Route: 065
  2. RADIATION THERAPY [Suspect]
  3. CHEMOTHERAPY [Suspect]

REACTIONS (15)
  - ACUTE PRERENAL FAILURE [None]
  - CACHEXIA [None]
  - DEATH [None]
  - DEHYDRATION [None]
  - DISEASE PROGRESSION [None]
  - HYPERCHLORAEMIA [None]
  - HYPERNATRAEMIA [None]
  - HYPOKALAEMIA [None]
  - HYPOTENSION [None]
  - LEUKOPENIA [None]
  - MALNUTRITION [None]
  - RADIATION SKIN INJURY [None]
  - SEPSIS [None]
  - SINUS TACHYCARDIA [None]
  - TONGUE ULCERATION [None]
